FAERS Safety Report 22144142 (Version 1)
Quarter: 2023Q1

REPORT INFORMATION
  Report Type: Report from Study
  Country: NL (occurrence: NL)
  Receive Date: 20230327
  Receipt Date: 20230327
  Transmission Date: 20230418
  Serious: Yes (Death)
  Sender: FDA-Public Use
  Company Number: NL-ABBVIE-4705917

PATIENT
  Age: 69 Year
  Sex: Male

DRUGS (3)
  1. CARBIDOPA\LEVODOPA [Suspect]
     Active Substance: CARBIDOPA\LEVODOPA
     Indication: Parkinson^s disease
     Dosage: MD: 9.5ML, CD: 5.8ML/H, ED: 3.5ML, CND: 2.5ML/H, END: 3.0ML
     Route: 050
     Dates: start: 20160628
  2. CARBIDOPA\LEVODOPA [Suspect]
     Active Substance: CARBIDOPA\LEVODOPA
     Dosage: MD: 10.0ML, CD: 5.8ML/H, ED: 3.5ML
     Route: 050
     Dates: end: 20230318
  3. MOVICOLON [Concomitant]
     Active Substance: POLYETHYLENE GLYCOL 3350\POTASSIUM CHLORIDE\SODIUM BICARBONATE\SODIUM CHLORIDE
     Indication: Parkinson^s disease

REACTIONS (4)
  - Death [Fatal]
  - Anal incontinence [Unknown]
  - Restlessness [Unknown]
  - Vomiting [Unknown]

NARRATIVE: CASE EVENT DATE: 20230301
